FAERS Safety Report 4611401-0 (Version None)
Quarter: 2005Q2

REPORT INFORMATION
  Report Type: 
  Country: None (occurrence: None)
  Receive Date: 20050311
  Receipt Date: 20041229
  Transmission Date: 20051028
  Serious: No
  Sender: FDA-Public Use
  Company Number: 2005-BP-00053BP

PATIENT
  Age: 43 Year
  Sex: Female

DRUGS (6)
  1. SPIRIVA [Suspect]
     Indication: ASTHMA
     Dosage: ONE QD (18 MCG, QD), IH
     Route: 055
     Dates: start: 20041201
  2. SPIRIVA [Suspect]
     Indication: BRONCHIOLITIS
     Dosage: ONE QD (18 MCG, QD), IH
     Route: 055
     Dates: start: 20041201
  3. ZYRTEC [Concomitant]
  4. SINGULAIR (MONTELUKAST) [Concomitant]
  5. MAXAIR [Concomitant]
  6. ORTHOGUARD [Concomitant]

REACTIONS (2)
  - AGEUSIA [None]
  - DRUG INEFFECTIVE [None]
